FAERS Safety Report 6387910-3 (Version None)
Quarter: 2009Q4

REPORT INFORMATION
  Report Type: 
  Country: None (occurrence: None)
  Receive Date: 20091005
  Receipt Date: 20090930
  Transmission Date: 20100525
  Serious: Yes (Hospitalization)
  Sender: FDA-Public Use
  Company Number: DE-AVENTIS-200912381DE

PATIENT
  Age: 49 Year
  Sex: Female
  Weight: 58 kg

DRUGS (3)
  1. TAXOTERE [Suspect]
     Route: 041
     Dates: start: 20090818, end: 20090818
  2. EPIRUBICIN [Concomitant]
     Route: 042
     Dates: start: 20090505, end: 20090721
  3. CYCLOPHOSPHAMIDE [Concomitant]
     Route: 042
     Dates: start: 20090505, end: 20090721

REACTIONS (2)
  - ACUTE STRESS DISORDER [None]
  - SUICIDAL IDEATION [None]
